FAERS Safety Report 8560984-7 (Version None)
Quarter: 2012Q3

REPORT INFORMATION
  Report Type: 
  Country: None (occurrence: None)
  Receive Date: 20120727
  Receipt Date: 20120727
  Transmission Date: 20120928
  Serious: Yes (Hospitalization)
  Sender: FDA-Public Use
  Company Number: None

PATIENT
  Age: 70 Year
  Sex: Female
  Weight: 90.1 kg

DRUGS (7)
  1. GLYBURIDE [Concomitant]
  2. QUINAPRIL [Concomitant]
  3. LOVAZA [Concomitant]
  4. NAPROXEN (ALEVE) [Suspect]
     Indication: BACK PAIN
     Dosage: 2 TAB DAILY PO RECENT
     Route: 048
  5. M.V.I. [Concomitant]
  6. METFORMIN HYDROCHLORIDE [Concomitant]
  7. NORVASC [Concomitant]

REACTIONS (4)
  - HAEMORRHAGIC ANAEMIA [None]
  - ANASTOMOTIC ULCER [None]
  - ASTHENIA [None]
  - FAECES DISCOLOURED [None]
